FAERS Safety Report 17399287 (Version 1)
Quarter: 2020Q1

REPORT INFORMATION
  Report Type: Spontaneous
  Country: TR (occurrence: TR)
  Receive Date: 20200211
  Receipt Date: 20200211
  Transmission Date: 20200409
  Serious: Yes (Other)
  Sender: FDA-Public Use
  Company Number: TR-LUPIN PHARMACEUTICALS INC.-2020-00652

PATIENT
  Sex: Male
  Weight: .67 kg

DRUGS (6)
  1. LEVOTHYROXINE SODIUM TABLETS [Suspect]
     Active Substance: LEVOTHYROXINE SODIUM
     Indication: CONGENITAL HYPOTHYROIDISM
     Dosage: 5 MICROGRAM/KILOGRAM
     Route: 048
  2. LEVOTHYROXINE SODIUM TABLETS [Suspect]
     Active Substance: LEVOTHYROXINE SODIUM
     Dosage: 10 MICROGRAM/KILOGRAM
     Route: 054
  3. LEVOTHYROXINE SODIUM TABLETS [Suspect]
     Active Substance: LEVOTHYROXINE SODIUM
     Dosage: 10 MICROGRAM/KILOGRAM
     Route: 048
  4. LEVOTHYROXINE SODIUM TABLETS [Suspect]
     Active Substance: LEVOTHYROXINE SODIUM
     Dosage: 10 MICROGRAM/KILOGRAM
     Route: 054
  5. LEVOTHYROXINE SODIUM TABLETS [Suspect]
     Active Substance: LEVOTHYROXINE SODIUM
     Dosage: 10 MICROGRAM/KILOGRAM
     Route: 054
  6. LEVOTHYROXINE SODIUM TABLETS [Suspect]
     Active Substance: LEVOTHYROXINE SODIUM
     Dosage: 10 MICROGRAM/KILOGRAM
     Route: 054

REACTIONS (2)
  - Product use issue [Unknown]
  - Therapy non-responder [Unknown]
